FAERS Safety Report 13354261 (Version 1)
Quarter: 2017Q1

REPORT INFORMATION
  Report Type: Spontaneous
  Country: None (occurrence: US)
  Receive Date: 20170318
  Receipt Date: 20170318
  Transmission Date: 20170429
  Serious: Yes (Hospitalization)
  Sender: FDA-Public Use
  Company Number: None

PATIENT
  Age: 61 Year
  Sex: Female
  Weight: 60.91 kg

DRUGS (1)
  1. DOXIL [Suspect]
     Active Substance: DOXORUBICIN HYDROCHLORIDE
     Dates: end: 20170302

REACTIONS (4)
  - Dyspnoea [None]
  - Pleural effusion [None]
  - Pleuritic pain [None]
  - Atelectasis [None]

NARRATIVE: CASE EVENT DATE: 20170313
